FAERS Safety Report 25095782 (Version 1)
Quarter: 2025Q1

REPORT INFORMATION
  Report Type: Report from Study
  Country: US (occurrence: US)
  Receive Date: 20250319
  Receipt Date: 20250319
  Transmission Date: 20250408
  Serious: Yes (Hospitalization, Other)
  Sender: ETON PHARMACEUTICALS, INC
  Company Number: US-ETON PHARMACEUTICALS, INC-2025ETO000102

PATIENT

DRUGS (1)
  1. ALKINDI SPRINKLE [Suspect]
     Active Substance: HYDROCORTISONE
     Indication: Adrenogenital syndrome
     Dosage: 2 MILLIGRAM, TID
     Route: 048
     Dates: start: 202406

REACTIONS (2)
  - Lethargy [Unknown]
  - Adrenocortical insufficiency acute [Unknown]

NARRATIVE: CASE EVENT DATE: 20250307
